FAERS Safety Report 24703061 (Version 1)
Quarter: 2024Q4

REPORT INFORMATION
  Report Type: Spontaneous
  Country: PE (occurrence: PE)
  Receive Date: 20241205
  Receipt Date: 20241205
  Transmission Date: 20250114
  Serious: Yes (Hospitalization)
  Sender: PFIZER
  Company Number: PE-PFIZER INC-PV202400048523

PATIENT
  Age: 13 Year
  Sex: Female

DRUGS (2)
  1. SOMATROPIN [Suspect]
     Active Substance: SOMATROPIN
     Dosage: 1.9 MG, DAILY (AT NIGHT)
     Route: 058
     Dates: start: 20221111
  2. ESTRADIOL [Suspect]
     Active Substance: ESTRADIOL
     Indication: Menstrual cycle management
     Dosage: UNK
     Dates: start: 202310

REACTIONS (3)
  - Eating disorder [Recovering/Resolving]
  - Weight decreased [Recovering/Resolving]
  - Behaviour disorder [Unknown]

NARRATIVE: CASE EVENT DATE: 20240101
